FAERS Safety Report 7406354-6 (Version None)
Quarter: 2011Q2

REPORT INFORMATION
  Report Type: 
  Country: None (occurrence: None)
  Receive Date: 20110411
  Receipt Date: 20110404
  Transmission Date: 20111010
  Serious: Yes (Other)
  Sender: FDA-Public Use
  Company Number: JP-PFIZER INC-2011053705

PATIENT
  Age: 69 Year
  Sex: Male

DRUGS (2)
  1. SOLU-CORTEF [Suspect]
  2. LANDIOLOL HYDROCHLORIDE [Suspect]
     Indication: THYROTOXIC CRISIS

REACTIONS (2)
  - VENTRICULAR FIBRILLATION [None]
  - ATRIAL FIBRILLATION [None]
